FAERS Safety Report 17080132 (Version 1)
Quarter: 2019Q4

REPORT INFORMATION
  Report Type: Spontaneous
  Country: US (occurrence: US)
  Receive Date: 20191029
  Receipt Date: 20191029
  Transmission Date: 20200122
  Serious: No
  Sender: FDA-Public Use
  Company Number: None

PATIENT
  Age: 58 Year
  Sex: Male

DRUGS (1)
  1. TIGECYCLINE 50 MG FRESENIUS KABI USA [Suspect]
     Active Substance: TIGECYCLINE
     Indication: BACTERIAL INFECTION
     Route: 042
     Dates: start: 20190731, end: 20191016

REACTIONS (1)
  - Rash [None]

NARRATIVE: CASE EVENT DATE: 20191015
